FAERS Safety Report 15115209 (Version 1)
Quarter: 2018Q3

REPORT INFORMATION
  Report Type: Spontaneous
  Country: DE (occurrence: DE)
  Receive Date: 20180706
  Receipt Date: 20180706
  Transmission Date: 20181010
  Serious: Yes (Other)
  Sender: FDA-Public Use
  Company Number: DE-AUROBINDO-AUR-APL-2017-08157

PATIENT
  Age: 41 Year
  Sex: Male

DRUGS (1)
  1. IBUPROFEN. [Suspect]
     Active Substance: IBUPROFEN
     Indication: MUSCULOSKELETAL PAIN
     Dosage: 400MG THREE TIMES DAILY, TOTAL OF 25.2 G
     Route: 065

REACTIONS (3)
  - Eye pain [Recovered/Resolved]
  - Vision blurred [Not Recovered/Not Resolved]
  - Optic neuritis [Not Recovered/Not Resolved]
